FAERS Safety Report 10953233 (Version 2)
Quarter: 2015Q1

REPORT INFORMATION
  Report Type: Spontaneous
  Country: US (occurrence: US)
  Receive Date: 20150325
  Receipt Date: 20150330
  Transmission Date: 20150721
  Serious: Yes (Other)
  Sender: FDA-Public Use
  Company Number: US-PFIZER INC-2015105255

PATIENT
  Age: 57 Year
  Sex: Female

DRUGS (4)
  1. GEODON [Suspect]
     Active Substance: ZIPRASIDONE HYDROCHLORIDE\ZIPRASIDONE MESYLATE
     Dosage: 20 MG, 2X/DAY WITH MEALS
  2. LORAZEPAM. [Suspect]
     Active Substance: LORAZEPAM
     Indication: TACHYCARDIA
     Dosage: 1 MG, 3X/DAY
  3. ATIVAN [Suspect]
     Active Substance: LORAZEPAM
     Indication: ANXIETY
     Dosage: 1 MG, 3X/DAY
  4. LORAZEPAM. [Suspect]
     Active Substance: LORAZEPAM
     Indication: MANIA

REACTIONS (6)
  - Heart rate increased [Unknown]
  - Bipolar disorder [Not Recovered/Not Resolved]
  - Mania [Unknown]
  - Weight increased [Unknown]
  - Type 2 diabetes mellitus [Not Recovered/Not Resolved]
  - Blood pressure increased [Unknown]
